FAERS Safety Report 7680631-6 (Version None)
Quarter: 2011Q3

REPORT INFORMATION
  Report Type: 
  Country: None (occurrence: None)
  Receive Date: 20110811
  Receipt Date: 20110811
  Transmission Date: 20111222
  Serious: Yes (Hospitalization)
  Sender: FDA-Public Use
  Company Number: None

PATIENT
  Age: 40 Year
  Sex: Male

DRUGS (5)
  1. TEMOZOLOMIDE [Suspect]
     Indication: GLIOBLASTOMA
     Dosage: 305MG, QD, PO
     Route: 048
     Dates: start: 20110729
  2. ATIVAN [Concomitant]
  3. PRAVASTATIN [Concomitant]
  4. TEMOZOLOMIDE [Suspect]
  5. BACTRIM [Concomitant]

REACTIONS (7)
  - VOMITING [None]
  - DIZZINESS POSTURAL [None]
  - NAUSEA [None]
  - MALAISE [None]
  - HEADACHE [None]
  - CHILLS [None]
  - VISUAL FIELD DEFECT [None]
